FAERS Safety Report 7749314-8 (Version None)
Quarter: 2011Q3

REPORT INFORMATION
  Report Type: 
  Country: None (occurrence: None)
  Receive Date: 20110909
  Receipt Date: 20110825
  Transmission Date: 20111222
  Serious: Yes (Other)
  Sender: FDA-Public Use
  Company Number: DE-1187786

PATIENT
  Age: 42 Year
  Sex: Male

DRUGS (9)
  1. ARTIFICIAL TEARS [Concomitant]
  2. SODIUM CHLORIDE INJ [Concomitant]
  3. VEXOL [Suspect]
     Indication: KERATITIS
     Dosage: (3 TIMES DAY OPTHALMIC)
     Route: 047
  4. DEXAMETHASONE [Suspect]
     Indication: KERATOMILEUSIS
     Dosage: (5 TIMES A DAY OPHTHALMIC)
     Route: 047
  5. DEXAMETHASONE [Suspect]
     Indication: KERATITIS
     Dosage: (5 TIMES A DAY OPHTHALMIC)
     Route: 047
  6. BRIMONIDINE TARTRATE [Concomitant]
  7. OFLOXACIN [Concomitant]
  8. ACETAZOLAMIDE [Concomitant]
  9. LATANOPROST [Concomitant]

REACTIONS (8)
  - CORNEAL OEDEMA [None]
  - KERATITIS [None]
  - GLAUCOMATOUS OPTIC DISC ATROPHY [None]
  - INTRAOCULAR PRESSURE INCREASED [None]
  - CORNEAL OPACITY [None]
  - VISION BLURRED [None]
  - VISUAL ACUITY REDUCED [None]
  - VISUAL FIELD DEFECT [None]
